FAERS Safety Report 13159959 (Version 2)
Quarter: 2017Q1

REPORT INFORMATION
  Report Type: Spontaneous
  Country: JP (occurrence: JP)
  Receive Date: 20170127
  Receipt Date: 20170327
  Transmission Date: 20170428
  Serious: Yes (Disabling)
  Sender: FDA-Public Use
  Company Number: JP-EISAI MEDICAL RESEARCH-EC-2016-023630

PATIENT
  Age: 48 Year
  Sex: Male

DRUGS (1)
  1. FYCOMPA [Suspect]
     Active Substance: PERAMPANEL
     Indication: AMYOTROPHIC LATERAL SCLEROSIS
     Route: 048
     Dates: start: 20161220

REACTIONS (2)
  - Product use issue [Recovered/Resolved with Sequelae]
  - Respiratory disorder [Recovered/Resolved with Sequelae]

NARRATIVE: CASE EVENT DATE: 20170126
